FAERS Safety Report 21521615 (Version 3)
Quarter: 2022Q4

REPORT INFORMATION
  Report Type: Spontaneous
  Country: US (occurrence: US)
  Receive Date: 20221028
  Receipt Date: 20221206
  Transmission Date: 20230112
  Serious: No
  Sender: FDA-Public Use
  Company Number: US-SA-SAC20221027001755

PATIENT
  Age: 70 Year
  Sex: Male
  Weight: 111.58 kg

DRUGS (19)
  1. DUPIXENT [Suspect]
     Active Substance: DUPILUMAB
     Indication: Dermatitis atopic
     Dosage: 300 MG, QOW
     Route: 058
     Dates: start: 20201224
  2. DUPIXENT [Suspect]
     Active Substance: DUPILUMAB
     Indication: Asthma
  3. LYNPARZA [Suspect]
     Active Substance: OLAPARIB
     Dosage: UNK
     Dates: end: 20221129
  4. ALEVE [Concomitant]
     Active Substance: NAPROXEN SODIUM
     Dosage: UNK
  5. ASPIRIN [Concomitant]
     Active Substance: ASPIRIN
     Dosage: UNK
  6. BIOTIN [Concomitant]
     Active Substance: BIOTIN
     Dosage: UNK
  7. CETIRIZINE [Concomitant]
     Active Substance: CETIRIZINE HYDROCHLORIDE
     Dosage: UNK
  8. CRESTOR [Concomitant]
     Active Substance: ROSUVASTATIN CALCIUM
     Dosage: UNK
  9. ELIGARD [Concomitant]
     Active Substance: LEUPROLIDE ACETATE
     Dosage: UNK
  10. FAMOTIDINE [Concomitant]
     Active Substance: FAMOTIDINE
     Dosage: UNK
  11. FLOMAX [Concomitant]
     Active Substance: TAMSULOSIN HYDROCHLORIDE
     Dosage: UNK
  12. NITROGLYCERIN [Concomitant]
     Active Substance: NITROGLYCERIN
     Dosage: UNK
  13. CALCIUM [Concomitant]
     Active Substance: CALCIUM
     Dosage: UNK
  14. PROLIA [Concomitant]
     Active Substance: DENOSUMAB
     Dosage: UNK
  15. RANEXA [Concomitant]
     Active Substance: RANOLAZINE
     Dosage: UNK
  16. VENTOLIN HFA [Concomitant]
     Active Substance: ALBUTEROL SULFATE
     Dosage: UNK
  17. VITAMIN C [Concomitant]
     Active Substance: ASCORBIC ACID
     Dosage: UNK
  18. VITAMIN D3 [Concomitant]
     Active Substance: CHOLECALCIFEROL
     Dosage: UNK
  19. DAILY-VITE [Concomitant]
     Dosage: UNK

REACTIONS (6)
  - Constipation [Unknown]
  - Fatigue [Unknown]
  - Asthenia [Unknown]
  - Hypotension [Unknown]
  - Prostatic specific antigen abnormal [Not Recovered/Not Resolved]
  - Dizziness [Unknown]
